FAERS Safety Report 8021948-5 (Version None)
Quarter: 2012Q1

REPORT INFORMATION
  Report Type: 
  Country: None (occurrence: None)
  Receive Date: 20120104
  Receipt Date: 20111226
  Transmission Date: 20120608
  Serious: Yes (Hospitalization)
  Sender: FDA-Public Use
  Company Number: PHHY2011FR113242

PATIENT
  Sex: Female

DRUGS (2)
  1. MINI-SINTROM [Suspect]
     Dosage: 2 DF, DAILY
     Dates: start: 20110128, end: 20110203
  2. VITAMIN K1 [Suspect]

REACTIONS (2)
  - INTERNATIONAL NORMALISED RATIO INCREASED [None]
  - OVERDOSE [None]
